FAERS Safety Report 20029101 (Version 1)
Quarter: 2021Q4

REPORT INFORMATION
  Report Type: Report from Study
  Country: US (occurrence: US)
  Receive Date: 20211103
  Receipt Date: 20211103
  Transmission Date: 20220303
  Serious: Yes (Other)
  Sender: FDA-Public Use
  Company Number: US-BAYER-2021A242369

PATIENT
  Age: 54 Year
  Sex: Male

DRUGS (11)
  1. XARELTO [Suspect]
     Active Substance: RIVAROXABAN
     Dosage: UNK
  2. ASPIRIN [Suspect]
     Active Substance: ASPIRIN
     Dosage: UNK
  3. VITAMINS [Concomitant]
     Active Substance: VITAMINS
  4. NIACIN [Concomitant]
     Active Substance: NIACIN
  5. ZINC [Concomitant]
     Active Substance: ZINC
  6. CALCIUM\VITAMIN D [Concomitant]
     Active Substance: CALCIUM\VITAMIN D
  7. VITAMIN D NOS [Concomitant]
     Active Substance: VITAMIN D NOS
  8. HYDROCHLOROTHIAZIDE [Concomitant]
     Active Substance: HYDROCHLOROTHIAZIDE
  9. BENAZEPRIL [Concomitant]
     Active Substance: BENAZEPRIL HYDROCHLORIDE
  10. ROSUVASTATIN [Concomitant]
     Active Substance: ROSUVASTATIN
  11. AMLODIPINE [Concomitant]
     Active Substance: AMLODIPINE BESYLATE

REACTIONS (1)
  - Rectal haemorrhage [Recovered/Resolved]
